FAERS Safety Report 5502666-1 (Version None)
Quarter: 2007Q4

REPORT INFORMATION
  Report Type: 
  Country: None (occurrence: None)
  Receive Date: 20071031
  Receipt Date: 20071023
  Transmission Date: 20080405
  Serious: Yes (Other)
  Sender: FDA-Public Use
  Company Number: US-ASTRAZENECA-2007UW24668

PATIENT
  Age: 93 Year
  Sex: Male

DRUGS (6)
  1. SEROQUEL [Suspect]
     Route: 048
  2. PHENYTOIN [Concomitant]
  3. ALBUTEROL [Concomitant]
  4. ASPIRIN [Concomitant]
  5. GLYBURIDE [Concomitant]
  6. CALCIUM CARBONATE [Concomitant]

REACTIONS (4)
  - ATRIOVENTRICULAR BLOCK [None]
  - CARDIAC DISORDER [None]
  - CARDIAC MURMUR [None]
  - SICK SINUS SYNDROME [None]
